FAERS Safety Report 23327114 (Version 1)
Quarter: 2023Q4

REPORT INFORMATION
  Report Type: Spontaneous
  Country: US (occurrence: None)
  Receive Date: 20231221
  Receipt Date: 20231221
  Transmission Date: 20240109
  Serious: Yes (Death)
  Sender: FDA-Public Use
  Company Number: None

PATIENT
  Sex: Male

DRUGS (8)
  1. CYCLOPHOSPHAMIDE [Suspect]
     Active Substance: CYCLOPHOSPHAMIDE
     Indication: Amyloidosis
     Dosage: FREQUENCY : WEEKLY;?
     Route: 048
     Dates: start: 20231003, end: 20231207
  2. CYCLOPHOSPHAMIDE [Suspect]
     Active Substance: CYCLOPHOSPHAMIDE
     Indication: B-cell lymphoma
  3. FINASTERIDE [Concomitant]
  4. TORSEMIDE [Concomitant]
  5. ATORVASTATIN [Concomitant]
  6. EPLERENONE [Concomitant]
  7. MELATONIN [Concomitant]
     Active Substance: MELATONIN
  8. DAILY MULTIVITAMIN [Concomitant]

REACTIONS (1)
  - Death [None]
